FAERS Safety Report 10419020 (Version 1)
Quarter: 2014Q3

REPORT INFORMATION
  Report Type: Report from Study
  Country: DE (occurrence: DE)
  Receive Date: 20140829
  Receipt Date: 20140829
  Transmission Date: 20150326
  Serious: Yes (Hospitalization)
  Sender: FDA-Public Use
  Company Number: DE-PFIZER INC-2014235632

PATIENT
  Age: 61 Year
  Sex: Female

DRUGS (9)
  1. AMOXICILLIN. [Concomitant]
     Active Substance: AMOXICILLIN
     Indication: SINUSITIS
     Dosage: 1000 MG, 4X/DAY (TOTAL DAILY DOSE REPORTED AS ^^3000MG^^)
     Route: 048
     Dates: start: 201407, end: 20140805
  2. PANTOZOL [Concomitant]
     Active Substance: PANTOPRAZOLE SODIUM
     Dosage: 40 MG, 1X/DAY
     Route: 048
  3. INTERFERON ALFA-2A [Suspect]
     Active Substance: INTERFERON ALFA-2A
     Indication: METASTATIC RENAL CELL CARCINOMA
     Dosage: 9 MU, 3 MIO IU FOR 2 WEEKS AND 6 MIO IU FROM WEEK 3, LAST DOSE PRIOR TO SAE 21APR2014 (1 IN 3 WEEK)
     Route: 058
     Dates: start: 20140203
  4. INLYTA [Suspect]
     Active Substance: AXITINIB
     Indication: METASTATIC RENAL CELL CARCINOMA
     Dosage: 7 MG, 1 IN 2 WEEK, LAST DOSE PRIOR TO SAE ON 31JUN2014
     Route: 048
     Dates: start: 20140428
  5. PARACETAMOL [Concomitant]
     Active Substance: ACETAMINOPHEN
     Dosage: UNK
     Route: 048
  6. NEPRESOL [Concomitant]
     Active Substance: DIHYDRALAZINE SULFATE
     Dosage: 50 MG, 2X/DAY
     Route: 048
  7. HYDROCHLOROTHIAZIDE. [Concomitant]
     Active Substance: HYDROCHLOROTHIAZIDE
     Dosage: 12.5 MG, 1X/DAY
     Route: 048
  8. BISOPROLOL [Concomitant]
     Active Substance: BISOPROLOL
     Dosage: 5 MG, 1X/DAY
     Route: 048
  9. BEVACIZUMAB [Suspect]
     Active Substance: BEVACIZUMAB
     Indication: METASTATIC RENAL CELL CARCINOMA
     Dosage: 10 MG/M2, 1 IN 2 WEEK, LAST DOSE PRIOR TO SAE 14APR2014
     Route: 042
     Dates: start: 20140203

REACTIONS (1)
  - Cholangitis sclerosing [Recovering/Resolving]

NARRATIVE: CASE EVENT DATE: 20140731
